FAERS Safety Report 15117486 (Version 1)
Quarter: 2018Q3

REPORT INFORMATION
  Report Type: Not Available
  Country: US (occurrence: US)
  Receive Date: 20180706
  Receipt Date: 20180706
  Transmission Date: 20181010
  Serious: Yes (Hospitalization)
  Sender: FDA-Public Use
  Company Number: US-NEUROCRINE BIOSCIENCES INC.-2018NBI01995

PATIENT
  Age: 61 Year
  Sex: Female

DRUGS (8)
  1. INGREZZA [Suspect]
     Active Substance: VALBENAZINE
     Route: 048
     Dates: start: 20170927, end: 20180526
  2. XANAX [Concomitant]
     Active Substance: ALPRAZOLAM
  3. PHENTERMINE. [Concomitant]
     Active Substance: PHENTERMINE
  4. INGREZZA [Suspect]
     Active Substance: VALBENAZINE
     Indication: PRODUCT USED FOR UNKNOWN INDICATION
     Route: 048
     Dates: start: 20170920, end: 20170926
  5. SEROQUEL [Concomitant]
     Active Substance: QUETIAPINE FUMARATE
  6. TRAZODONE [Concomitant]
     Active Substance: TRAZODONE HYDROCHLORIDE
  7. LAMOTRIGINE. [Concomitant]
     Active Substance: LAMOTRIGINE
  8. LITHIUM. [Concomitant]
     Active Substance: LITHIUM

REACTIONS (1)
  - Myocardial infarction [Unknown]

NARRATIVE: CASE EVENT DATE: 20180526
